FAERS Safety Report 10313966 (Version 2)
Quarter: 2014Q3

REPORT INFORMATION
  Report Type: Spontaneous
  Country: US (occurrence: US)
  Receive Date: 20140718
  Receipt Date: 20140826
  Transmission Date: 20150326
  Serious: Yes (Hospitalization)
  Sender: FDA-Public Use
  Company Number: US-JNJFOC-20140704779

PATIENT
  Age: 56 Year
  Sex: Female

DRUGS (15)
  1. XARELTO [Suspect]
     Active Substance: RIVAROXABAN
     Indication: THROMBOSIS
     Route: 048
  2. MUCINEX [Concomitant]
     Active Substance: GUAIFENESIN
     Route: 065
  3. HEPARIN [Concomitant]
     Active Substance: HEPARIN SODIUM
     Route: 065
  4. LOVAZA [Suspect]
     Active Substance: OMEGA-3-ACID ETHYL ESTERS
     Indication: ARTERIAL DISORDER
     Route: 048
  5. COUMADIN [Interacting]
     Active Substance: WARFARIN SODIUM
     Indication: PRODUCT USED FOR UNKNOWN INDICATION
     Route: 065
  6. FENTANYL. [Concomitant]
     Active Substance: FENTANYL
     Route: 065
  7. KLONOPIN [Concomitant]
     Active Substance: CLONAZEPAM
     Route: 065
  8. CATAPRES [Concomitant]
     Active Substance: CLONIDINE HYDROCHLORIDE
     Route: 065
  9. LOVAZA [Suspect]
     Active Substance: OMEGA-3-ACID ETHYL ESTERS
     Indication: BLOOD CHOLESTEROL INCREASED
     Route: 048
  10. NEURONTIN [Concomitant]
     Active Substance: GABAPENTIN
     Route: 065
  11. VITAMIN C [Concomitant]
     Active Substance: ASCORBIC ACID
     Route: 065
  12. LOVAZA [Suspect]
     Active Substance: OMEGA-3-ACID ETHYL ESTERS
     Indication: ARTERIOSCLEROSIS
     Route: 048
  13. METAMUCIL [Concomitant]
     Active Substance: PLANTAGO SEED
     Route: 065
  14. PHENOBARBITAL. [Concomitant]
     Active Substance: PHENOBARBITAL
     Route: 065
  15. BIOFLAVONOIDS [Concomitant]
     Active Substance: BIOFLAVONOIDS
     Route: 065

REACTIONS (7)
  - Hysterectomy [Recovering/Resolving]
  - Thrombosis [Unknown]
  - Drug interaction [Unknown]
  - Nonspecific reaction [Unknown]
  - Arrhythmia [Unknown]
  - Chest pain [Unknown]
  - Drug dose omission [Unknown]

NARRATIVE: CASE EVENT DATE: 201301
